FAERS Safety Report 5773170-0 (Version None)
Quarter: 2008Q2

REPORT INFORMATION
  Report Type: 
  Country: None (occurrence: None)
  Receive Date: 20080616
  Receipt Date: 20080312
  Transmission Date: 20081010
  Serious: No
  Sender: FDA-Public Use
  Company Number: US-BAYER-200712799BCC

PATIENT
  Age: 72 Year
  Sex: Female
  Weight: 150 kg

DRUGS (4)
  1. ALEVE [Suspect]
     Indication: ARTHRALGIA
     Dosage: UNIT DOSE: 220 MG
     Route: 048
     Dates: end: 20070820
  2. LANTUS [Concomitant]
  3. ROBAXIN [Concomitant]
     Indication: MUSCLE RELAXANT THERAPY
  4. HUMALOG [Concomitant]

REACTIONS (3)
  - CHROMATURIA [None]
  - CYSTITIS [None]
  - MUSCLE SPASMS [None]
